FAERS Safety Report 24327365 (Version 2)
Quarter: 2024Q3

REPORT INFORMATION
  Report Type: Spontaneous
  Country: US (occurrence: US)
  Receive Date: 20240917
  Receipt Date: 20240922
  Transmission Date: 20241017
  Serious: Yes (Hospitalization)
  Sender: UCB
  Company Number: US-UCBSA-2024040886

PATIENT
  Sex: Female
  Weight: 82.993 kg

DRUGS (1)
  1. CIMZIA [Suspect]
     Active Substance: CERTOLIZUMAB PEGOL
     Indication: Rheumatoid arthritis
     Dosage: 400 MILLIGRAM, EV 4 WEEKS
     Route: 058
     Dates: start: 202406

REACTIONS (3)
  - Septic shock [Unknown]
  - Injection site rash [Unknown]
  - Injection site pruritus [Unknown]

NARRATIVE: CASE EVENT DATE: 20240101
